FAERS Safety Report 6577768-1 (Version None)
Quarter: 2010Q1

REPORT INFORMATION
  Report Type: 
  Country: None (occurrence: None)
  Receive Date: 20100211
  Receipt Date: 20100201
  Transmission Date: 20100710
  Serious: Yes (Hospitalization)
  Sender: FDA-Public Use
  Company Number: JP-ROCHE-646984

PATIENT
  Sex: Male
  Weight: 72 kg

DRUGS (10)
  1. AVASTIN [Suspect]
     Indication: COLON CANCER METASTATIC
     Route: 041
     Dates: start: 20090406, end: 20090406
  2. ELPLAT [Concomitant]
     Route: 041
     Dates: start: 20090223, end: 20090323
  3. ELPLAT [Concomitant]
     Route: 041
     Dates: start: 20090406, end: 20090406
  4. 5-FU [Concomitant]
     Route: 040
     Dates: start: 20090223, end: 20090323
  5. 5-FU [Concomitant]
     Route: 040
     Dates: start: 20090223, end: 20090323
  6. 5-FU [Concomitant]
     Route: 040
     Dates: start: 20090406, end: 20090406
  7. 5-FU [Concomitant]
     Route: 040
     Dates: start: 20090406, end: 20090407
  8. LEVOFOLINATE [Concomitant]
     Route: 041
     Dates: start: 20090223, end: 20090323
  9. LEVOFOLINATE [Concomitant]
     Route: 041
     Dates: start: 20090406, end: 20090406
  10. HYPEN [Concomitant]
     Route: 048

REACTIONS (2)
  - LARGE INTESTINE PERFORATION [None]
  - PERITONITIS [None]
